FAERS Safety Report 24667129 (Version 1)
Quarter: 2024Q4

REPORT INFORMATION
  Report Type: Spontaneous
  Country: ES (occurrence: ES)
  Receive Date: 20241126
  Receipt Date: 20241126
  Transmission Date: 20250114
  Serious: Yes (Other)
  Sender: ABBVIE
  Company Number: ES-AMGEN-ESPSP2023173185

PATIENT
  Age: 72 Year
  Sex: Female

DRUGS (4)
  1. DEXAMETHASONE [Suspect]
     Active Substance: DEXAMETHASONE
     Indication: Plasma cell myeloma
     Dosage: TIME INTERVAL: AS NECESSARY
     Route: 050
     Dates: start: 2022
  2. ETOPOSIDE [Concomitant]
     Active Substance: ETOPOSIDE
     Indication: Plasma cell myeloma
     Dosage: UNK
     Route: 065
     Dates: start: 202307
  3. KYPROLIS [Suspect]
     Active Substance: CARFILZOMIB
     Indication: Plasma cell myeloma
     Dosage: UNK
     Route: 065
     Dates: start: 2022
  4. CISPLATIN [Concomitant]
     Active Substance: CISPLATIN
     Indication: Plasma cell myeloma
     Dosage: UNK
     Route: 065
     Dates: start: 202307

REACTIONS (1)
  - Thrombotic microangiopathy [Unknown]
